FAERS Safety Report 22064539 (Version 1)
Quarter: 2023Q1

REPORT INFORMATION
  Report Type: Spontaneous
  Country: US (occurrence: US)
  Receive Date: 20230306
  Receipt Date: 20230306
  Transmission Date: 20230417
  Serious: No
  Sender: FDA-Public Use
  Company Number: US-JNJFOC-20230247491

PATIENT
  Sex: Female

DRUGS (2)
  1. ZYRTEC [Suspect]
     Active Substance: CETIRIZINE HYDROCHLORIDE
     Indication: Urticaria
     Dosage: I NORMALLY TAKE ZYRTEC 10MG AT A DOSE OF TWO 10MG TABLETS BY MOUTH TWICE DAILY.
     Route: 048
  2. ZYRTEC [Suspect]
     Active Substance: CETIRIZINE HYDROCHLORIDE
     Dosage: ACCIDENTALLY TOOK FOUR.
     Route: 048
     Dates: start: 20230217

REACTIONS (3)
  - Off label use [Unknown]
  - Prescribed overdose [Unknown]
  - Accidental overdose [Unknown]

NARRATIVE: CASE EVENT DATE: 20230217
